FAERS Safety Report 9572378 (Version 1)
Quarter: 2013Q3

REPORT INFORMATION
  Report Type: Spontaneous
  Country: US (occurrence: None)
  Receive Date: 20130930
  Receipt Date: 20130930
  Transmission Date: 20140515
  Serious: No
  Sender: FDA-Public Use
  Company Number: None

PATIENT
  Age: 73 Year
  Sex: Female
  Weight: 71.67 kg

DRUGS (1)
  1. DIFLUNISAL [Suspect]
     Indication: ARTHRITIS
     Dosage: 1 TABLET
     Dates: start: 20130823, end: 20130827

REACTIONS (8)
  - Chest pain [None]
  - Abdominal pain upper [None]
  - Flatulence [None]
  - Nausea [None]
  - Dizziness [None]
  - Fatigue [None]
  - Asthenia [None]
  - Activities of daily living impaired [None]
